FAERS Safety Report 7371804-0 (Version None)
Quarter: 2011Q1

REPORT INFORMATION
  Report Type: 
  Country: None (occurrence: None)
  Receive Date: 20110324
  Receipt Date: 20110314
  Transmission Date: 20110831
  Serious: No
  Sender: FDA-Public Use
  Company Number: US-JNJFOC-20110307148

PATIENT
  Sex: Female
  Weight: 80.74 kg

DRUGS (2)
  1. VICODIN [Concomitant]
     Indication: PAIN
     Route: 048
  2. DURAGESIC-50 [Suspect]
     Indication: PAIN
     Route: 062

REACTIONS (5)
  - TREATMENT NONCOMPLIANCE [None]
  - CONSTIPATION [None]
  - WITHDRAWAL SYNDROME [None]
  - INSOMNIA [None]
  - FEELING ABNORMAL [None]
